FAERS Safety Report 4651728-X (Version None)
Quarter: 2005Q2

REPORT INFORMATION
  Report Type: 
  Country: None (occurrence: None)
  Receive Date: 20050404
  Receipt Date: 20041122
  Transmission Date: 20051028
  Serious: No
  Sender: FDA-Public Use
  Company Number: USA041184424

PATIENT
  Age: 47 Year
  Sex: Female
  Weight: 91 kg

DRUGS (2)
  1. CYMBALTA [Suspect]
     Indication: FIBROMYALGIA
     Dosage: 30 MG DAY
     Dates: start: 20041120
  2. TYLENOL (CAPLET) [Concomitant]

REACTIONS (2)
  - FEELING ABNORMAL [None]
  - TREMOR [None]
